FAERS Safety Report 5811869-8 (Version None)
Quarter: 2008Q3

REPORT INFORMATION
  Report Type: 
  Country: None (occurrence: None)
  Receive Date: 20080716
  Receipt Date: 20080715
  Transmission Date: 20090109
  Serious: Yes (Other)
  Sender: FDA-Public Use
  Company Number: FR-WYE-G01867208

PATIENT
  Sex: Male

DRUGS (10)
  1. RHINADVIL [Suspect]
     Dosage: AS REQUIRED
     Route: 048
     Dates: start: 20070317, end: 20070101
  2. IRBESARTAN [Concomitant]
     Dosage: 75 MG
     Route: 048
     Dates: start: 20061209
  3. RAMIPRIL [Concomitant]
     Dosage: UNKNOWN
     Route: 048
     Dates: start: 20070618
  4. GLUCOPHAGE [Concomitant]
     Dosage: UNKNOWN
     Route: 048
     Dates: end: 20071204
  5. CORDARONE [Concomitant]
     Dosage: UNKNOWN
     Route: 048
  6. AMLOR [Concomitant]
     Dosage: 10 MG
     Route: 048
  7. PRAVASTATIN [Concomitant]
     Dosage: 40 MG
     Route: 048
  8. DIAMICRON [Concomitant]
     Dosage: UNKNOWN
     Route: 048
  9. TENORMIN [Concomitant]
     Dosage: 150 MG
     Route: 048
  10. FUROSEMIDE [Concomitant]
     Dosage: 40 MG
     Route: 048

REACTIONS (1)
  - BLOOD CREATINE INCREASED [None]
